FAERS Safety Report 7268169-1 (Version None)
Quarter: 2011Q1

REPORT INFORMATION
  Report Type: 
  Country: None (occurrence: None)
  Receive Date: 20110201
  Receipt Date: 20101005
  Transmission Date: 20110831
  Serious: Yes (Life-Threatening, Hospitalization, Other)
  Sender: FDA-Public Use
  Company Number: PHHO2010ZM15031

PATIENT
  Sex: Female
  Weight: 52 kg

DRUGS (5)
  1. FOLIC ACID [Concomitant]
  2. METRONIDAZOLE [Concomitant]
  3. AMOXICILLIN [Concomitant]
  4. ARTEMETHER,BENFLUMETOL [Suspect]
     Indication: MALARIA
     Dosage: UNK
     Route: 048
     Dates: start: 20100921
  5. FERROUS SULFATE TAB [Concomitant]

REACTIONS (8)
  - PLACENTA PRAEVIA HAEMORRHAGE [None]
  - PELVIC PAIN [None]
  - VAGINAL HAEMORRHAGE [None]
  - DRUG EXPOSURE DURING PREGNANCY [None]
  - CAESAREAN SECTION [None]
  - UTERINE CONTRACTIONS ABNORMAL [None]
  - PYREXIA [None]
  - PREMATURE LABOUR [None]
